FAERS Safety Report 8604937-9 (Version None)
Quarter: 2012Q3

REPORT INFORMATION
  Report Type: 
  Country: None (occurrence: None)
  Receive Date: 20120820
  Receipt Date: 20120816
  Transmission Date: 20120928
  Serious: Yes (Death)
  Sender: FDA-Public Use
  Company Number: TW-PFIZER INC-2012202296

PATIENT
  Age: 50 Year
  Sex: Male

DRUGS (1)
  1. GEODON [Suspect]
     Dosage: 60 MG, BID

REACTIONS (1)
  - ELECTROCARDIOGRAM QT INTERVAL ABNORMAL [None]
